FAERS Safety Report 4536584-2 (Version None)
Quarter: 2004Q4

REPORT INFORMATION
  Report Type: 
  Country: None (occurrence: None)
  Receive Date: 20041223
  Receipt Date: 20041210
  Transmission Date: 20050328
  Serious: Yes (Other)
  Sender: FDA-Public Use
  Company Number: GB-JNJFOC-20041202845

PATIENT
  Age: 75 Year
  Sex: Male

DRUGS (10)
  1. TRAMADOL HCL [Suspect]
     Route: 049
  2. PYRIDOXINE HCL [Concomitant]
     Route: 049
  3. GABAPENTIN [Concomitant]
     Route: 065
  4. DOXAZOSIN [Concomitant]
     Route: 065
  5. FINASTERIDE [Concomitant]
     Route: 065
  6. ATORVASTATIN [Concomitant]
     Route: 065
  7. ASPIRIN [Concomitant]
     Route: 065
  8. DIGOXIN [Concomitant]
     Route: 065
  9. FLUCLOXACILLIN [Concomitant]
     Route: 049
  10. IBUPROFEN [Concomitant]
     Route: 065

REACTIONS (5)
  - CONFUSIONAL STATE [None]
  - FEAR [None]
  - HALLUCINATION [None]
  - PARANOIA [None]
  - PSYCHOTIC DISORDER [None]
